FAERS Safety Report 19371739 (Version 3)
Quarter: 2021Q4

REPORT INFORMATION
  Report Type: Report from Study
  Country: KR (occurrence: KR)
  Receive Date: 20210604
  Receipt Date: 20211115
  Transmission Date: 20220303
  Serious: Yes (Other)
  Sender: FDA-Public Use
  Company Number: KR-KYOWAKIRIN-2021AKK009333

PATIENT
  Age: 64 Year
  Sex: Male

DRUGS (22)
  1. FILGRASTIM [Suspect]
     Active Substance: FILGRASTIM
     Indication: Product used for unknown indication
     Dosage: 623 MILLIGRAM
     Route: 065
     Dates: start: 20080714, end: 20080714
  2. FILGRASTIM [Suspect]
     Active Substance: FILGRASTIM
     Dosage: 623 UNK
     Route: 065
     Dates: start: 20080806, end: 20080806
  3. FILGRASTIM [Suspect]
     Active Substance: FILGRASTIM
     Dosage: 623 UNK
     Route: 065
     Dates: start: 20080827, end: 20080827
  4. FILGRASTIM [Suspect]
     Active Substance: FILGRASTIM
     Dosage: 623 UNK
     Route: 065
     Dates: start: 20080923, end: 20080923
  5. FILGRASTIM [Suspect]
     Active Substance: FILGRASTIM
     Dosage: 850 UNK
     Route: 065
     Dates: start: 20080714, end: 20080714
  6. FILGRASTIM [Suspect]
     Active Substance: FILGRASTIM
     Dosage: 850 UNK
     Route: 065
     Dates: start: 20080806, end: 20080806
  7. FILGRASTIM [Suspect]
     Active Substance: FILGRASTIM
     Dosage: 850 UNK
     Route: 065
     Dates: start: 20080827, end: 20080827
  8. FILGRASTIM [Suspect]
     Active Substance: FILGRASTIM
     Dosage: 850 UNK
     Route: 065
     Dates: start: 20080923, end: 20080923
  9. FILGRASTIM [Suspect]
     Active Substance: FILGRASTIM
     Dosage: 860 UNK
     Route: 065
     Dates: start: 20080714, end: 20080714
  10. FILGRASTIM [Suspect]
     Active Substance: FILGRASTIM
     Dosage: 860 UNK
     Route: 065
     Dates: start: 20080806
  11. FILGRASTIM [Suspect]
     Active Substance: FILGRASTIM
     Dosage: 860 UNK
     Route: 065
     Dates: start: 20080827, end: 20080827
  12. FILGRASTIM [Suspect]
     Active Substance: FILGRASTIM
     Dosage: 860 UNK
     Route: 065
     Dates: start: 20080923, end: 20080923
  13. PEMETREXED [Concomitant]
     Active Substance: PEMETREXED
     Indication: Product used for unknown indication
     Dosage: 623 MILLIGRAM
     Route: 065
     Dates: start: 20080714, end: 20080714
  14. PEMETREXED [Concomitant]
     Active Substance: PEMETREXED
     Dosage: 623 MILLIGRAM
     Route: 065
     Dates: start: 20080806, end: 20080806
  15. PEMETREXED [Concomitant]
     Active Substance: PEMETREXED
     Dosage: 623 MILLIGRAM
     Route: 065
     Dates: start: 20080827, end: 20080827
  16. PEMETREXED [Concomitant]
     Active Substance: PEMETREXED
     Dosage: 623 MILLIGRAM
     Route: 065
     Dates: start: 20080923, end: 20080923
  17. CYANOCOBALAMIN [Concomitant]
     Active Substance: CYANOCOBALAMIN
     Indication: Product used for unknown indication
     Dosage: UNK
     Route: 065
     Dates: start: 20080827
  18. DEXAMETHASONE [Concomitant]
     Active Substance: DEXAMETHASONE
     Indication: Product used for unknown indication
     Dosage: 4 MILLIGRAM
     Route: 065
     Dates: start: 20080713, end: 20080715
  19. DEXAMETHASONE [Concomitant]
     Active Substance: DEXAMETHASONE
     Dosage: 4 MILLIGRAM
     Route: 065
     Dates: start: 20080805, end: 20080807
  20. DEXAMETHASONE [Concomitant]
     Active Substance: DEXAMETHASONE
     Dosage: 4 MILLIGRAM
     Route: 065
     Dates: start: 20080826, end: 20080828
  21. DEXAMETHASONE [Concomitant]
     Active Substance: DEXAMETHASONE
     Dosage: 4 MILLIGRAM
     Route: 065
     Dates: start: 20080922, end: 20080924
  22. FOLIC ACID [Concomitant]
     Active Substance: FOLIC ACID
     Indication: Product used for unknown indication
     Dosage: 1 MILLIGRAM
     Route: 065

REACTIONS (3)
  - Neutropenia [Recovered/Resolved]
  - Neutropenia [Recovered/Resolved]
  - Neutropenia [Recovered/Resolved]

NARRATIVE: CASE EVENT DATE: 20080722
